FAERS Safety Report 6922194-6 (Version None)
Quarter: 2010Q3

REPORT INFORMATION
  Report Type: 
  Country: None (occurrence: None)
  Receive Date: 20100812
  Receipt Date: 20100803
  Transmission Date: 20110219
  Serious: Yes (Hospitalization, Other)
  Sender: FDA-Public Use
  Company Number: AU-AMGEN-KDC407958

PATIENT

DRUGS (4)
  1. PANITUMUMAB [Suspect]
     Indication: GASTROOESOPHAGEAL CANCER
     Dates: start: 20100401
  2. CISPLATIN [Suspect]
     Dates: start: 20100401
  3. FLUOROPYRIMIDINE [Suspect]
     Dates: start: 20100401
  4. DOCETAXEL [Suspect]
     Dates: start: 20100401

REACTIONS (2)
  - ATRIAL FLUTTER [None]
  - ORTHOSTATIC HYPOTENSION [None]
